FAERS Safety Report 21308108 (Version 1)
Quarter: 2022Q3

REPORT INFORMATION
  Report Type: Spontaneous
  Country: US (occurrence: None)
  Receive Date: 20220908
  Receipt Date: 20220908
  Transmission Date: 20221027
  Serious: Yes (Hospitalization)
  Sender: FDA-Public Use
  Company Number: None

PATIENT
  Age: 84 Year
  Sex: Female
  Weight: 130 kg

DRUGS (1)
  1. FEMARA [Suspect]
     Active Substance: LETROZOLE
     Dosage: OTHER QUANTITY : 52.5MG;?
     Dates: end: 20220821

REACTIONS (2)
  - Flank pain [None]
  - Pyelonephritis [None]

NARRATIVE: CASE EVENT DATE: 20220821
